FAERS Safety Report 7456997-9 (Version None)
Quarter: 2011Q2

REPORT INFORMATION
  Report Type: 
  Country: None (occurrence: None)
  Receive Date: 20110504
  Receipt Date: 20110420
  Transmission Date: 20111010
  Serious: Yes (Other)
  Sender: FDA-Public Use
  Company Number: US-BAYER-2011-037660

PATIENT
  Age: 35 Year
  Sex: Female
  Weight: 86.168 kg

DRUGS (3)
  1. YASMIN [Suspect]
     Dosage: UNK
     Dates: start: 20020517, end: 20030630
  2. NSAID'S [Concomitant]
     Dosage: UNK UNK, PRN
  3. VITAMIN C [Concomitant]

REACTIONS (4)
  - DEPRESSION [None]
  - DEEP VEIN THROMBOSIS [None]
  - ANXIETY [None]
  - POST THROMBOTIC SYNDROME [None]
